FAERS Safety Report 16491739 (Version 2)
Quarter: 2019Q3

REPORT INFORMATION
  Report Type: Spontaneous
  Country: US (occurrence: US)
  Receive Date: 20190628
  Receipt Date: 20190701
  Transmission Date: 20191004
  Serious: Yes (Other)
  Sender: FDA-Public Use
  Company Number: US-ASTRAZENECA-2019SE92335

PATIENT
  Age: 55 Year
  Sex: Male

DRUGS (5)
  1. RAMIPRIL. [Concomitant]
     Active Substance: RAMIPRIL
     Indication: HYPERTENSION
  2. SIMVASTATIN. [Concomitant]
     Active Substance: SIMVASTATIN
     Indication: DYSLIPIDAEMIA
  3. INSULIN [Concomitant]
     Active Substance: INSULIN NOS
  4. XIGDUO XR [Suspect]
     Active Substance: DAPAGLIFLOZIN PROPANEDIOL\METFORMIN HYDROCHLORIDE
     Indication: TYPE 2 DIABETES MELLITUS
     Dosage: 10/1000 MG PO DAILY
     Route: 048
     Dates: start: 2018
  5. TRULICITY [Concomitant]
     Active Substance: DULAGLUTIDE

REACTIONS (3)
  - Diabetic ketoacidosis [Unknown]
  - Blood glucose increased [Unknown]
  - Dizziness [Unknown]

NARRATIVE: CASE EVENT DATE: 201811
